FAERS Safety Report 6863991-5 (Version None)
Quarter: 2010Q3

REPORT INFORMATION
  Report Type: 
  Country: None (occurrence: None)
  Receive Date: 20100721
  Receipt Date: 20080317
  Transmission Date: 20110219
  Serious: No
  Sender: FDA-Public Use
  Company Number: US-PFIZER INC-2008024114

PATIENT
  Sex: Male
  Weight: 86.4 kg

DRUGS (8)
  1. CHANTIX [Suspect]
     Indication: SMOKING CESSATION THERAPY
     Dates: start: 20071201
  2. MORPHINE [Concomitant]
  3. LISINOPRIL [Concomitant]
  4. RANITIDINE [Concomitant]
  5. METHOCARBAMOL [Concomitant]
  6. ISOSORBIDE MONONITRATE [Concomitant]
  7. ACETYLSALICYLIC ACID [Concomitant]
  8. DRUG, UNSPECIFIED [Concomitant]
     Route: 055

REACTIONS (5)
  - ABNORMAL DREAMS [None]
  - FATIGUE [None]
  - MALAISE [None]
  - MOOD SWINGS [None]
  - SLEEP DISORDER [None]
